FAERS Safety Report 6100732-3 (Version None)
Quarter: 2009Q1

REPORT INFORMATION
  Report Type: 
  Country: None (occurrence: None)
  Receive Date: 20090303
  Receipt Date: 20090302
  Transmission Date: 20090719
  Serious: Yes (Hospitalization, Disabling)
  Sender: FDA-Public Use
  Company Number: JP-B.I. PHARMACEUTICALS,INC./RIDGEFIELD-2009-BP-01624NB

PATIENT
  Sex: Female
  Weight: 55 kg

DRUGS (5)
  1. MICARDIS [Suspect]
     Indication: HYPERTENSION
     Dosage: 40MG
     Route: 048
     Dates: start: 20061013, end: 20071203
  2. DIOVAN [Concomitant]
     Indication: HYPERTENSION
     Dosage: 80MG
     Route: 048
     Dates: start: 20071201, end: 20080101
  3. NU-LOTAN [Concomitant]
     Indication: CARDIOVASCULAR EVENT PROPHYLAXIS
     Dosage: 50MG
     Route: 048
     Dates: start: 20070101, end: 20070901
  4. ETICALM [Concomitant]
     Indication: INSOMNIA
     Dosage: .5MG
     Route: 048
     Dates: start: 20071201
  5. AMARYL [Concomitant]
     Dosage: 1MG
     Route: 048
     Dates: start: 20060814, end: 20080201

REACTIONS (2)
  - CEREBRAL HAEMORRHAGE [None]
  - MYOCARDIAL INFARCTION [None]
